FAERS Safety Report 21007592 (Version 3)
Quarter: 2022Q3

REPORT INFORMATION
  Report Type: Spontaneous
  Country: US (occurrence: US)
  Receive Date: 20220626
  Receipt Date: 20220901
  Transmission Date: 20221027
  Serious: Yes (Other)
  Sender: FDA-Public Use
  Company Number: US-JNJFOC-20220640671

PATIENT
  Age: 48 Year
  Sex: Female

DRUGS (21)
  1. ELMIRON [Suspect]
     Active Substance: PENTOSAN POLYSULFATE SODIUM
     Indication: Cystitis interstitial
     Route: 048
     Dates: start: 2004, end: 201201
  2. ELMIRON [Suspect]
     Active Substance: PENTOSAN POLYSULFATE SODIUM
     Route: 048
     Dates: start: 20120110, end: 201205
  3. ELMIRON [Suspect]
     Active Substance: PENTOSAN POLYSULFATE SODIUM
     Route: 048
     Dates: start: 20131222, end: 201406
  4. ELMIRON [Suspect]
     Active Substance: PENTOSAN POLYSULFATE SODIUM
     Route: 048
     Dates: start: 20141125, end: 201501
  5. ELMIRON [Suspect]
     Active Substance: PENTOSAN POLYSULFATE SODIUM
     Route: 048
     Dates: start: 20150211, end: 201801
  6. ELMIRON [Suspect]
     Active Substance: PENTOSAN POLYSULFATE SODIUM
     Route: 048
     Dates: start: 20180131, end: 201903
  7. ELMIRON [Suspect]
     Active Substance: PENTOSAN POLYSULFATE SODIUM
     Route: 048
     Dates: start: 20200213, end: 20200304
  8. ELMIRON [Suspect]
     Active Substance: PENTOSAN POLYSULFATE SODIUM
     Route: 048
  9. ELMIRON [Suspect]
     Active Substance: PENTOSAN POLYSULFATE SODIUM
     Route: 048
     Dates: start: 20191119, end: 20200212
  10. TOPIRAMATE [Concomitant]
     Active Substance: TOPIRAMATE
     Indication: Migraine
     Dates: start: 20140526
  11. BUPROPION HYDROCHLORIDE [Concomitant]
     Active Substance: BUPROPION HYDROCHLORIDE
     Indication: Anxiety
     Dosage: 150 MG AND 300 MG
     Dates: start: 20130920
  12. BUPROPION HYDROCHLORIDE [Concomitant]
     Active Substance: BUPROPION HYDROCHLORIDE
     Dates: end: 201710
  13. APRISO [Concomitant]
     Active Substance: MESALAMINE
     Indication: Gastrointestinal disorder
     Dates: start: 20141002, end: 2018
  14. CYCLAFEM 1/35 [Concomitant]
     Active Substance: ETHINYL ESTRADIOL\NORETHINDRONE
     Indication: Contraception
     Dosage: 1MG- 35MCG
     Dates: start: 20140620, end: 201708
  15. SPIRONOLACTONE [Concomitant]
     Active Substance: SPIRONOLACTONE
     Indication: Prophylaxis
     Dates: start: 20141222, end: 2019
  16. LEVOTHYROXINE SODIUM [Concomitant]
     Active Substance: LEVOTHYROXINE SODIUM
     Indication: Hypothyroidism
     Dates: start: 20150211, end: 201903
  17. LEXAPRO [Concomitant]
     Active Substance: ESCITALOPRAM OXALATE
     Indication: Anxiety
     Dates: start: 20150624
  18. LEXAPRO [Concomitant]
     Active Substance: ESCITALOPRAM OXALATE
     Dates: start: 20160603, end: 202011
  19. ESOMEPRAZOLE MAGNESIUM [Concomitant]
     Active Substance: ESOMEPRAZOLE MAGNESIUM
     Indication: Gastrooesophageal reflux disease
     Dates: start: 20150507, end: 201604
  20. RANITIDINE HYDROCHLORIDE [Concomitant]
     Active Substance: RANITIDINE HYDROCHLORIDE
     Indication: Gastrooesophageal reflux disease
     Dosage: 150 MG AND 300 MG
     Dates: start: 20150618, end: 2019
  21. LORAZEPAM [Concomitant]
     Active Substance: LORAZEPAM
     Indication: Anxiety
     Dates: start: 20141121, end: 201812

REACTIONS (3)
  - Dry age-related macular degeneration [Not Recovered/Not Resolved]
  - Maculopathy [Not Recovered/Not Resolved]
  - Off label use [Unknown]

NARRATIVE: CASE EVENT DATE: 20150805
